FAERS Safety Report 25640005 (Version 1)
Quarter: 2025Q3

REPORT INFORMATION
  Report Type: Report from Study
  Country: US (occurrence: US)
  Receive Date: 20250804
  Receipt Date: 20250804
  Transmission Date: 20251020
  Serious: Yes (Hospitalization, Other)
  Sender: ABBVIE
  Company Number: US-ABBVIE-6394680

PATIENT
  Age: 36 Year

DRUGS (1)
  1. HUMIRA [Suspect]
     Active Substance: ADALIMUMAB
     Indication: Hidradenitis
     Route: 058
     Dates: start: 20250401, end: 20250629

REACTIONS (8)
  - Burns second degree [Recovering/Resolving]
  - Concussion [Unknown]
  - Suicide attempt [Unknown]
  - Injection site haemorrhage [Unknown]
  - Contusion [Unknown]
  - Suture insertion [Recovering/Resolving]
  - Pain in extremity [Unknown]
  - Burns third degree [Recovering/Resolving]

NARRATIVE: CASE EVENT DATE: 20250101
